FAERS Safety Report 25912236 (Version 1)
Quarter: 2025Q4

REPORT INFORMATION
  Report Type: Spontaneous
  Country: US (occurrence: US)
  Receive Date: 20251013
  Receipt Date: 20251013
  Transmission Date: 20260117
  Serious: Yes (Hospitalization, Other)
  Sender: AUROBINDO
  Company Number: US-MLMSERVICE-20250924-PI657237-00177-1

PATIENT
  Age: 56 Year
  Sex: Male

DRUGS (1)
  1. HYDROCORTISONE [Suspect]
     Active Substance: HYDROCORTISONE
     Indication: Product used for unknown indication
     Dosage: UNK
     Route: 065

REACTIONS (5)
  - Strongyloidiasis [Recovered/Resolved]
  - Respiratory symptom [Recovered/Resolved]
  - Septic shock [Unknown]
  - Escherichia bacteraemia [Unknown]
  - Cholangitis [Unknown]

NARRATIVE: CASE EVENT DATE: 20191201
